FAERS Safety Report 11208295 (Version 2)
Quarter: 2015Q3

REPORT INFORMATION
  Report Type: Spontaneous
  Country: US (occurrence: US)
  Receive Date: 20150622
  Receipt Date: 20150731
  Transmission Date: 20151125
  Serious: No
  Sender: FDA-Public Use
  Company Number: US-TAKEDA-2015TUS007963

PATIENT
  Age: 50 Year
  Sex: Male
  Weight: 97 kg

DRUGS (2)
  1. ENTYVIO [Suspect]
     Active Substance: VEDOLIZUMAB
     Indication: PRODUCT USED FOR UNKNOWN INDICATION
     Dosage: 300 MG, UNK
     Route: 042
     Dates: start: 20150505, end: 20150505
  2. PREDNISONE. [Concomitant]
     Active Substance: PREDNISONE
     Dosage: UNK
     Route: 048
     Dates: start: 201503, end: 201504

REACTIONS (6)
  - Weight loss poor [Recovering/Resolving]
  - Faeces soft [Recovered/Resolved]
  - Acne [Not Recovered/Not Resolved]
  - Abdominal distension [Unknown]
  - Drug ineffective [Unknown]
  - Diarrhoea [Recovered/Resolved]

NARRATIVE: CASE EVENT DATE: 20150616
